FAERS Safety Report 16453874 (Version 1)
Quarter: 2019Q2

REPORT INFORMATION
  Report Type: Spontaneous
  Country: ZA (occurrence: ZA)
  Receive Date: 20190619
  Receipt Date: 20190619
  Transmission Date: 20190711
  Serious: Yes (Hospitalization)
  Sender: FDA-Public Use
  Company Number: PHHY2019ZA127556

PATIENT
  Sex: Male

DRUGS (2)
  1. TAREG [Suspect]
     Active Substance: VALSARTAN
     Indication: CARDIAC FAILURE
     Dosage: 80 MG, UNK
     Route: 065
  2. CO-TAREG [Suspect]
     Active Substance: HYDROCHLOROTHIAZIDE\VALSARTAN
     Indication: PRODUCT USED FOR UNKNOWN INDICATION
     Dosage: UNK
     Route: 065

REACTIONS (1)
  - Cardiac failure [Unknown]
